FAERS Safety Report 8410547-9 (Version None)
Quarter: 2012Q2

REPORT INFORMATION
  Report Type: 
  Country: None (occurrence: None)
  Receive Date: 20120605
  Receipt Date: 20120525
  Transmission Date: 20120825
  Serious: Yes (Death, Hospitalization)
  Sender: FDA-Public Use
  Company Number: CN-BRISTOL-MYERS SQUIBB COMPANY-16440752

PATIENT
  Age: 52 Year
  Sex: Male
  Weight: 64 kg

DRUGS (3)
  1. CISPLATIN [Suspect]
     Indication: OROPHARYNGEAL CANCER STAGE UNSPECIFIED
     Dosage: DRUG INTERRUPTED ON 21FEB12
     Dates: start: 20120221
  2. CETUXIMAB [Suspect]
     Indication: OROPHARYNGEAL CANCER STAGE UNSPECIFIED
     Dosage: DRUG INTERRUPTED ON 21FEB12
     Route: 041
     Dates: start: 20120221
  3. DOCETAXEL [Suspect]
     Indication: OROPHARYNGEAL CANCER STAGE UNSPECIFIED
     Dosage: DRUG INTERRUPTED ON 21FEB12
     Dates: start: 20120221

REACTIONS (4)
  - THROMBOCYTOPENIA [None]
  - PULMONARY HAEMORRHAGE [None]
  - NEUTROPENIA [None]
  - LEUKOPENIA [None]
